FAERS Safety Report 15942853 (Version 2)
Quarter: 2019Q2

REPORT INFORMATION
  Report Type: Spontaneous
  Country: PL (occurrence: PL)
  Receive Date: 20190210
  Receipt Date: 20190614
  Transmission Date: 20190711
  Serious: Yes (Hospitalization, Other)
  Sender: FDA-Public Use
  Company Number: PHHY2019PL027063

PATIENT
  Age: 65 Year
  Sex: Male

DRUGS (2)
  1. AMOXICILLIN+CLAVULANIC ACID [Suspect]
     Active Substance: AMOXICILLIN\CLAVULANIC ACID
     Indication: ANTIBIOTIC PROPHYLAXIS
     Dosage: UNK
     Route: 065
  2. CLARITHROMYCIN. [Suspect]
     Active Substance: CLARITHROMYCIN
     Indication: SPINAL PAIN
     Dosage: UNK
     Route: 048

REACTIONS (23)
  - Back pain [Recovered/Resolved]
  - Hypertonia [Recovered/Resolved]
  - Rash [Recovered/Resolved]
  - Erythema [Recovered/Resolved]
  - Hypochromic anaemia [Recovered/Resolved]
  - Inflammation [Recovered/Resolved]
  - Toxic epidermal necrolysis [Recovered/Resolved]
  - Intervertebral discitis [Recovered/Resolved]
  - Skin swelling [Recovered/Resolved]
  - Myositis [Recovered/Resolved]
  - Pruritus [Recovered/Resolved]
  - Soft tissue swelling [Recovered/Resolved]
  - Infective spondylitis [Recovered/Resolved]
  - Drug ineffective [Recovered/Resolved]
  - Dermatitis [Recovered/Resolved]
  - Gait disturbance [Recovered/Resolved]
  - Spinal pain [Recovered/Resolved]
  - Drug hypersensitivity [Recovered/Resolved]
  - Pain [Recovered/Resolved]
  - Muscle oedema [Recovered/Resolved]
  - Arthralgia [Recovered/Resolved]
  - Intervertebral disc space narrowing [Recovered/Resolved]
  - Lasegue^s test positive [Recovered/Resolved]
